FAERS Safety Report 14195913 (Version 1)
Quarter: 2017Q4

REPORT INFORMATION
  Report Type: Spontaneous
  Country: US (occurrence: US)
  Receive Date: 20171116
  Receipt Date: 20171116
  Transmission Date: 20180321
  Serious: No
  Sender: FDA-Public Use
  Company Number: US-ALLERGAN-1671031US

PATIENT
  Sex: Female

DRUGS (1)
  1. GENTAMICIN UNK [Suspect]
     Active Substance: GENTAMICIN
     Indication: SKIN INFECTION
     Dosage: UNK
     Route: 061

REACTIONS (2)
  - Drug hypersensitivity [Recovered/Resolved]
  - Pharyngeal oedema [Unknown]
